FAERS Safety Report 5644159-7 (Version None)
Quarter: 2008Q1

REPORT INFORMATION
  Report Type: 
  Country: None (occurrence: None)
  Receive Date: 20080227
  Receipt Date: 20080213
  Transmission Date: 20080703
  Serious: Yes (Hospitalization)
  Sender: FDA-Public Use
  Company Number: 200711010

PATIENT
  Age: 59 Year
  Sex: Male
  Weight: 103.4201 kg

DRUGS (18)
  1. TESTIM [Suspect]
     Indication: BLOOD TESTOSTERONE DECREASED
     Dosage: 50 MG, DAILY, TRANSDERMAL
     Route: 062
     Dates: start: 20070606, end: 20070620
  2. CYCLOBENZAPRINE [Concomitant]
  3. DARVOCET N (PROPACET) [Concomitant]
  4. CAMPRAL (ACAMPROSA [Concomitant]
  5. BENADRYL [Concomitant]
  6. DIOVAN [Concomitant]
  7. GEODON [Concomitant]
  8. PROTONIX [Concomitant]
  9. TRICOR [Concomitant]
  10. LEXAPRO [Concomitant]
  11. LEVOTHYROXINE SODIUM [Concomitant]
  12. ALTACE [Concomitant]
  13. COREG [Concomitant]
  14. SEROQUEL XR (QUETIAPINE FUMARATE) [Concomitant]
  15. KLONOPIN [Concomitant]
  16. SUDAFED 12 HOUR [Concomitant]
  17. DEPAKOTE [Concomitant]
  18. AMBIEN [Concomitant]

REACTIONS (8)
  - BIPOLAR DISORDER [None]
  - DELUSION [None]
  - GRANDIOSITY [None]
  - HALLUCINATION, VISUAL [None]
  - HYPOGLYCAEMIA [None]
  - INSOMNIA [None]
  - MALABSORPTION [None]
  - MANIA [None]
